FAERS Safety Report 20736811 (Version 1)
Quarter: 2022Q2

REPORT INFORMATION
  Report Type: Spontaneous
  Country: US (occurrence: US)
  Receive Date: 20220421
  Receipt Date: 20220421
  Transmission Date: 20220721
  Serious: No
  Sender: FDA-Public Use
  Company Number: US-Kiniksa Pharmaceuticals Ltd.-2022KPU000064

PATIENT
  Sex: Female

DRUGS (6)
  1. ARCALYST [Suspect]
     Active Substance: RILONACEPT
     Indication: Pericarditis
     Route: 058
     Dates: start: 20220103
  2. ANAKINRA [Concomitant]
     Active Substance: ANAKINRA
     Indication: Product used for unknown indication
  3. LIDOCAINE [Concomitant]
     Active Substance: LIDOCAINE
     Indication: Pain prophylaxis
     Route: 061
  4. COLCHICINE [Concomitant]
     Active Substance: COLCHICINE
     Indication: Injection site inflammation
  5. NAPROXEN [Concomitant]
     Active Substance: NAPROXEN
     Indication: Injection site inflammation
  6. PEPCID [Concomitant]
     Active Substance: FAMOTIDINE
     Indication: Abdominal discomfort

REACTIONS (3)
  - Injection site pain [Not Recovered/Not Resolved]
  - Exposure to SARS-CoV-2 [Unknown]
  - Anxiety [Not Recovered/Not Resolved]
